FAERS Safety Report 10527700 (Version 1)
Quarter: 2014Q4

REPORT INFORMATION
  Report Type: Spontaneous
  Country: US (occurrence: None)
  Receive Date: 20141016
  Receipt Date: 20141016
  Transmission Date: 20150528
  Serious: No
  Sender: FDA-Public Use
  Company Number: None

PATIENT
  Age: 56 Year
  Sex: Male
  Weight: 73.94 kg

DRUGS (1)
  1. LISINOPRIL. [Suspect]
     Active Substance: LISINOPRIL
     Indication: HYPERTENSION
     Dosage: 1 PILL PER DAY?ONCE DAILY?TAKEN BY MOUTH
     Route: 048
     Dates: start: 20140923, end: 20141011

REACTIONS (4)
  - Product substitution issue [None]
  - Headache [None]
  - Palpitations [None]
  - Malaise [None]

NARRATIVE: CASE EVENT DATE: 20141011
